FAERS Safety Report 8332649-8 (Version None)
Quarter: 2012Q2

REPORT INFORMATION
  Report Type: 
  Country: None (occurrence: None)
  Receive Date: 20120503
  Receipt Date: 20120418
  Transmission Date: 20120825
  Serious: Yes (Other)
  Sender: FDA-Public Use
  Company Number: CN-JNJFOC-20111105790

PATIENT
  Sex: Male
  Weight: 70 kg

DRUGS (4)
  1. RISPERDAL [Suspect]
     Indication: SCHIZOPHRENIA
     Route: 048
     Dates: start: 20091022, end: 20111122
  2. RISPERDAL [Suspect]
     Route: 048
     Dates: start: 20111001
  3. RISPERDAL [Suspect]
     Route: 048
     Dates: start: 20111101
  4. CITALOPRAM HYDROBROMIDE [Concomitant]
     Indication: PRODUCT USED FOR UNKNOWN INDICATION
     Route: 065
     Dates: start: 20110401

REACTIONS (5)
  - BRADYPHRENIA [None]
  - THINKING ABNORMAL [None]
  - MEMORY IMPAIRMENT [None]
  - MENTAL RETARDATION [None]
  - SLOW RESPONSE TO STIMULI [None]
